FAERS Safety Report 9167543 (Version 2)
Quarter: 2013Q1

REPORT INFORMATION
  Report Type: Spontaneous
  Country: US (occurrence: US)
  Receive Date: 20130318
  Receipt Date: 20130328
  Transmission Date: 20140127
  Serious: Yes (Hospitalization, Other)
  Sender: FDA-Public Use
  Company Number: US-JNJFOC-20100802837

PATIENT
  Age: 46 None
  Sex: Female
  Weight: 113.4 kg

DRUGS (2)
  1. LEVAQUIN [Suspect]
     Indication: BACTERIAL INFECTION
     Route: 048
  2. LORTAB [Concomitant]
     Indication: PAIN
     Route: 065

REACTIONS (4)
  - Rotator cuff syndrome [Recovering/Resolving]
  - Joint injury [Recovering/Resolving]
  - Rotator cuff syndrome [Recovering/Resolving]
  - Nerve compression [Unknown]
